FAERS Safety Report 9868304 (Version 1)
Quarter: 2014Q1

REPORT INFORMATION
  Report Type: Spontaneous
  Country: BE (occurrence: BE)
  Receive Date: 20140204
  Receipt Date: 20140204
  Transmission Date: 20141002
  Serious: Yes (Life-Threatening, Hospitalization, Other)
  Sender: FDA-Public Use
  Company Number: BE-WATSON-2014-01181

PATIENT
  Age: 37 Year
  Sex: Male

DRUGS (3)
  1. AZATHIOPRINE (UNKNOWN) [Suspect]
     Indication: COLITIS ULCERATIVE
     Dosage: UNK
     Route: 065
     Dates: start: 2007
  2. AZATHIOPRINE (UNKNOWN) [Interacting]
     Dosage: 2 MG/KG, UNK
     Route: 065
     Dates: start: 200505
  3. ALLOPURINOL (UNKNOWN) [Interacting]
     Indication: GOUT
     Dosage: UNK
     Route: 065
     Dates: start: 200512

REACTIONS (6)
  - Nodular regenerative hyperplasia [Unknown]
  - Oesophageal varices haemorrhage [Recovered/Resolved]
  - Portal fibrosis [Unknown]
  - Hepatic steatosis [Unknown]
  - Pancytopenia [Unknown]
  - Drug interaction [Unknown]
